FAERS Safety Report 18831558 (Version 8)
Quarter: 2021Q2

REPORT INFORMATION
  Report Type: Other
  Country: GB (occurrence: GB)
  Receive Date: 20210203
  Receipt Date: 20210614
  Transmission Date: 20210717
  Serious: Yes (Death, Other)
  Sender: FDA-Public Use
  Company Number: GB-CELLTRION INC.-2021GB001057

PATIENT

DRUGS (7)
  1. PERJETA [Suspect]
     Active Substance: PERTUZUMAB
     Indication: CHOLANGIOCARCINOMA
     Dosage: 420 MG, EVERY 3 WEEKS (MOST RECENT DOSE PRIOR TO AE 03/AUG/2020)
     Route: 042
     Dates: start: 20200626
  2. CARVEDILOL. [Concomitant]
     Active Substance: CARVEDILOL
     Indication: VARICOSE VEIN
     Dosage: 6.25 (0.5/ DAY)
     Route: 048
     Dates: start: 202007
  3. TINZAPARIN [Concomitant]
     Active Substance: TINZAPARIN
     Indication: PULMONARY EMBOLISM
     Dosage: 15000 IU, 1X/DAY
     Route: 058
     Dates: start: 20200617
  4. DOCUSATE [Concomitant]
     Active Substance: DOCUSATE
     Dosage: 100 MG, (0.5/DAY)
  5. TRASTUZUMAB (UNKNOWN) [Suspect]
     Active Substance: TRASTUZUMAB
     Indication: CHOLANGIOCARCINOMA
     Dosage: 504 MG, EVERY 3 WEEKS UNIT=NOT AVAILABLE (MOST RECENT DOSE PRIOR TO AE 03/AUG/2020)
     Route: 042
     Dates: start: 20200626
  6. LANSOPRAZOLE. [Concomitant]
     Active Substance: LANSOPRAZOLE
     Dosage: 30 MG, QD
     Route: 048
     Dates: start: 201902
  7. LANSOPRAZOLE. [Concomitant]
     Active Substance: LANSOPRAZOLE
     Dosage: 30 MG, (0.5/DAY)

REACTIONS (7)
  - Nausea [Unknown]
  - Pain [Unknown]
  - Disease progression [Fatal]
  - Death [Fatal]
  - Intentional product use issue [Unknown]
  - Pyrexia [Recovered/Resolved]
  - Off label use [Unknown]

NARRATIVE: CASE EVENT DATE: 20200812
